FAERS Safety Report 17751316 (Version 8)
Quarter: 2021Q3

REPORT INFORMATION
  Report Type: Spontaneous
  Country: US (occurrence: US)
  Receive Date: 20200506
  Receipt Date: 20210906
  Transmission Date: 20211014
  Serious: Yes (Hospitalization, Other)
  Sender: FDA-Public Use
  Company Number: US-GILEAD-2020-0464283

PATIENT
  Age: 63 Year
  Sex: Male
  Weight: 86.18 kg

DRUGS (44)
  1. ATRIPLA [Suspect]
     Active Substance: EFAVIRENZ\EMTRICITABINE\TENOFOVIR DISOPROXIL FUMARATE
     Indication: HIV INFECTION
     Dosage: UNK
     Route: 048
     Dates: start: 20120512, end: 20131013
  2. ACETAMINOPHEN. [Concomitant]
     Active Substance: ACETAMINOPHEN
  3. PREDNISOLONE. [Concomitant]
     Active Substance: PREDNISOLONE
  4. TRIAMCINOLONE [Concomitant]
     Active Substance: TRIAMCINOLONE
  5. VANCOMYCIN [Concomitant]
     Active Substance: VANCOMYCIN
  6. ACETAMINOPHEN;HYDROCODONE [Concomitant]
     Active Substance: ACETAMINOPHEN\HYDROCODONE
  7. DICLOFENAC [Concomitant]
     Active Substance: DICLOFENAC
  8. DEPAKOTE [Concomitant]
     Active Substance: DIVALPROEX SODIUM
  9. HEPARIN [Concomitant]
     Active Substance: HEPARIN SODIUM
  10. LEVOTHYROXINE. [Concomitant]
     Active Substance: LEVOTHYROXINE
  11. ABACAVIR. [Concomitant]
     Active Substance: ABACAVIR
  12. DESLORATADINE. [Concomitant]
     Active Substance: DESLORATADINE
  13. PROZAC [Concomitant]
     Active Substance: FLUOXETINE HYDROCHLORIDE
  14. MYRBETRIQ [Concomitant]
     Active Substance: MIRABEGRON
  15. METHYLPREDNISOLONE. [Concomitant]
     Active Substance: METHYLPREDNISOLONE
  16. EPZICOM [Concomitant]
     Active Substance: ABACAVIR SULFATE\LAMIVUDINE
  17. TIVICAY [Concomitant]
     Active Substance: DOLUTEGRAVIR SODIUM
  18. LISINOPRIL. [Concomitant]
     Active Substance: LISINOPRIL
  19. METOPROLOL. [Concomitant]
     Active Substance: METOPROLOL
  20. CELEBREX [Concomitant]
     Active Substance: CELECOXIB
  21. XIFAXAN [Concomitant]
     Active Substance: RIFAXIMIN
  22. MIRTAZAPINE. [Concomitant]
     Active Substance: MIRTAZAPINE
  23. AZITHROMYCIN ANHYDROUS. [Concomitant]
     Active Substance: AZITHROMYCIN ANHYDROUS
  24. TRICOR [ADENOSINE] [Concomitant]
     Active Substance: ADENOSINE
  25. BUPROPION. [Concomitant]
     Active Substance: BUPROPION
  26. OMEGA 3 ACID ETHYL ESTERS [Concomitant]
     Active Substance: OMEGA-3-ACID ETHYL ESTERS
  27. METFORMIN [Concomitant]
     Active Substance: METFORMIN HYDROCHLORIDE
  28. ATORVASTATIN [Concomitant]
     Active Substance: ATORVASTATIN
  29. TRIUMEQ [Concomitant]
     Active Substance: ABACAVIR SULFATE\DOLUTEGRAVIR SODIUM\LAMIVUDINE
  30. HYDROCHLOROTHIAZIDE. [Concomitant]
     Active Substance: HYDROCHLOROTHIAZIDE
  31. CIPROFLOXACIN. [Concomitant]
     Active Substance: CIPROFLOXACIN
  32. FERROUS SULFATE. [Concomitant]
     Active Substance: FERROUS SULFATE
  33. LOVAZA [Concomitant]
     Active Substance: OMEGA-3-ACID ETHYL ESTERS
  34. POLYETHYLENE GLYCOL [MACROGOL] [Concomitant]
     Active Substance: POLYETHYLENE GLYCOLS
  35. PRAVASTATIN. [Concomitant]
     Active Substance: PRAVASTATIN
  36. SUSTIVA [Concomitant]
     Active Substance: EFAVIRENZ
  37. OXYBUTYNIN. [Concomitant]
     Active Substance: OXYBUTYNIN CHLORIDE
  38. ATRIPLA [Suspect]
     Active Substance: EFAVIRENZ\EMTRICITABINE\TENOFOVIR DISOPROXIL FUMARATE
     Dosage: UNK
     Route: 048
     Dates: start: 20120512, end: 201310
  39. PREDNISONE. [Concomitant]
     Active Substance: PREDNISONE
  40. TYLENOL [Concomitant]
     Active Substance: ACETAMINOPHEN
  41. AMLODIPINE [Concomitant]
     Active Substance: AMLODIPINE BESYLATE
  42. BYSTOLIC [Concomitant]
     Active Substance: NEBIVOLOL HYDROCHLORIDE
  43. FENOFIBRATE. [Concomitant]
     Active Substance: FENOFIBRATE
  44. PIOGLITAZONE. [Concomitant]
     Active Substance: PIOGLITAZONE

REACTIONS (39)
  - Clostridium difficile infection [Recovered/Resolved]
  - Renal failure [Not Recovered/Not Resolved]
  - Renal tubular necrosis [Recovered/Resolved]
  - Acute kidney injury [Recovered/Resolved]
  - Acute kidney injury [Recovered/Resolved]
  - Osteomyelitis [Recovered/Resolved]
  - Intervertebral discitis [Recovered/Resolved]
  - Hyperkalaemia [Recovered/Resolved]
  - Chronic kidney disease-mineral and bone disorder [Recovered/Resolved]
  - Feeling drunk [Unknown]
  - Poor quality sleep [Unknown]
  - End stage renal disease [Recovered/Resolved]
  - Staphylococcal bacteraemia [Recovered/Resolved]
  - Toxic encephalopathy [Recovered/Resolved]
  - Intervertebral discitis [Recovered/Resolved]
  - Azotaemia [Recovered/Resolved]
  - Chronic kidney disease [Not Recovered/Not Resolved]
  - Chronic kidney disease-mineral and bone disorder [Unknown]
  - Acute kidney injury [Recovered/Resolved]
  - Lower limb fracture [Unknown]
  - Nephrogenic anaemia [Recovered/Resolved]
  - Hyperparathyroidism secondary [Recovered/Resolved]
  - Paranoia [Unknown]
  - Device related bacteraemia [Recovered/Resolved]
  - Azotaemia [Recovered/Resolved]
  - Chronic kidney disease [Not Recovered/Not Resolved]
  - Chronic kidney disease [Not Recovered/Not Resolved]
  - Renal failure [Not Recovered/Not Resolved]
  - Renal tubular necrosis [Recovered/Resolved]
  - Disorientation [Unknown]
  - Somnolence [Unknown]
  - Azotaemia [Recovered/Resolved]
  - Emotional distress [Unknown]
  - Osteopenia [Not Recovered/Not Resolved]
  - Osteomyelitis [Recovered/Resolved]
  - Tibia fracture [Recovered/Resolved]
  - Nightmare [Unknown]
  - Pain [Unknown]
  - Staphylococcal bacteraemia [Recovered/Resolved]

NARRATIVE: CASE EVENT DATE: 20130930
